FAERS Safety Report 13380382 (Version 3)
Quarter: 2020Q4

REPORT INFORMATION
  Report Type: Other
  Country: CA (occurrence: CA)
  Receive Date: 20170328
  Receipt Date: 20201021
  Transmission Date: 20210113
  Serious: Yes (Hospitalization, Other)
  Sender: FDA-Public Use
  Company Number: CA-APOTEX-2017AP008549

PATIENT
  Age: 69 Year
  Sex: Male

DRUGS (4)
  1. CLOPIDOGREL [Suspect]
     Active Substance: CLOPIDOGREL BISULFATE
     Indication: PRODUCT USED FOR UNKNOWN INDICATION
     Route: 065
  2. LIPITOR [Suspect]
     Active Substance: ATORVASTATIN CALCIUM
     Indication: PRODUCT USED FOR UNKNOWN INDICATION
     Route: 065
  3. NINTEDANIB ESILATE [Suspect]
     Active Substance: NINTEDANIB ESYLATE
     Indication: IDIOPATHIC PULMONARY FIBROSIS
     Dosage: 150 MILLIGRAM, BID
     Route: 048
  4. OFEV [Suspect]
     Active Substance: NINTEDANIB
     Indication: IDIOPATHIC PULMONARY FIBROSIS
     Dosage: 150 MG, BID
     Route: 048

REACTIONS (11)
  - Gait disturbance [Not Recovered/Not Resolved]
  - Eructation [Not Recovered/Not Resolved]
  - Decreased appetite [Not Recovered/Not Resolved]
  - Diarrhoea [Not Recovered/Not Resolved]
  - Poor quality sleep [Not Recovered/Not Resolved]
  - Potentiating drug interaction [Not Recovered/Not Resolved]
  - Nausea [Not Recovered/Not Resolved]
  - Gastric disorder [Not Recovered/Not Resolved]
  - Oxygen consumption increased [Not Recovered/Not Resolved]
  - Abdominal discomfort [Not Recovered/Not Resolved]
  - Hospitalisation [Not Recovered/Not Resolved]
